FAERS Safety Report 9617526 (Version 3)
Quarter: 2015Q2

REPORT INFORMATION
  Report Type: Report from Study
  Country: RO (occurrence: RO)
  Receive Date: 20131011
  Receipt Date: 20150528
  Transmission Date: 20150821
  Serious: Yes (Death, Hospitalization, Other)
  Sender: FDA-Public Use
  Company Number: RO-GLAXOSMITHKLINE-B0927346A

PATIENT
  Age: 81 Year
  Sex: Male

DRUGS (13)
  1. FLUTICASONE FUROATE [Suspect]
     Active Substance: FLUTICASONE FUROATE
     Indication: CHRONIC OBSTRUCTIVE PULMONARY DISEASE
     Dosage: 100 MCG
     Route: 055
     Dates: start: 20120313, end: 20130606
  2. ASPENTER [Concomitant]
     Active Substance: ASPIRIN
     Indication: LEFT VENTRICULAR FAILURE
  3. DIUREX [Concomitant]
     Active Substance: PAMABROM
     Indication: LEFT VENTRICULAR FAILURE
  4. ATORVASTATIN [Concomitant]
     Active Substance: ATORVASTATIN
     Indication: LEFT VENTRICULAR FAILURE
  5. NITROGLYCERIN. [Concomitant]
     Active Substance: NITROGLYCERIN
     Indication: LEFT VENTRICULAR FAILURE
     Dosage: 0.5 MG, PRN
     Route: 060
     Dates: start: 20120116
  6. DIUREX [Concomitant]
     Active Substance: PAMABROM
     Indication: LEFT VENTRICULAR FAILURE
     Dosage: 1 TAB, OD, 50/20
     Route: 048
     Dates: start: 20120116
  7. NITROGLYCERIN. [Concomitant]
     Active Substance: NITROGLYCERIN
     Indication: LEFT VENTRICULAR FAILURE
  8. ENALAPRIL [Concomitant]
     Active Substance: ENALAPRIL
     Indication: HYPERTENSION
     Dosage: 10 MG, BID
     Route: 048
     Dates: start: 20120116
  9. ENALAPRIL [Concomitant]
     Active Substance: ENALAPRIL
     Indication: HYPERTENSION
  10. ISODINIT [Concomitant]
     Indication: LEFT VENTRICULAR FAILURE
  11. ISODINIT [Concomitant]
     Indication: LEFT VENTRICULAR FAILURE
     Dosage: 10 MG, BID
     Route: 048
     Dates: start: 20120116
  12. ATORVASTATIN [Concomitant]
     Active Substance: ATORVASTATIN
     Indication: LEFT VENTRICULAR FAILURE
     Dosage: 20 MG, OD
     Route: 048
     Dates: start: 20120116
  13. ASPENTER [Concomitant]
     Active Substance: ASPIRIN
     Indication: LEFT VENTRICULAR FAILURE
     Dosage: 75 MG, OD
     Route: 048
     Dates: start: 20120116

REACTIONS (1)
  - Bronchopneumonia [Fatal]

NARRATIVE: CASE EVENT DATE: 20130909
